FAERS Safety Report 12009508 (Version 1)
Quarter: 2016Q1

REPORT INFORMATION
  Report Type: Spontaneous
  Country: CA (occurrence: CA)
  Receive Date: 20160205
  Receipt Date: 20160205
  Transmission Date: 20160526
  Serious: Yes (Other)
  Sender: FDA-Public Use
  Company Number: CA-SA-2016SA016990

PATIENT
  Age: 31 Year
  Sex: Female

DRUGS (1)
  1. CLOMID [Suspect]
     Active Substance: CLOMIPHENE CITRATE
     Dosage: FOR 2 DAYS
     Route: 065

REACTIONS (5)
  - Tremor [Unknown]
  - Chest discomfort [Unknown]
  - Dyspnoea [Unknown]
  - Feeling hot [Unknown]
  - Heart rate increased [Unknown]
